FAERS Safety Report 6264606-X (Version None)
Quarter: 2009Q3

REPORT INFORMATION
  Report Type: 
  Country: None (occurrence: None)
  Receive Date: 20090710
  Receipt Date: 20090707
  Transmission Date: 20100115
  Serious: Yes (Other)
  Sender: FDA-Public Use
  Company Number: FR-ROXANE LABORATORIES, INC.-2009-RO-00659RO

PATIENT
  Age: 29 Year
  Sex: Female

DRUGS (8)
  1. FLUTICASONE [Suspect]
     Indication: ASTHMA
     Dosage: 2000 MCG
     Route: 055
  2. NEVIRAPINE [Suspect]
     Indication: HIV INFECTION
  3. RITONAVIR [Suspect]
     Indication: HIV INFECTION
  4. ATAZANAVIR SULFATE [Suspect]
     Indication: HIV INFECTION
  5. EMTRICITABINE [Suspect]
     Indication: HIV INFECTION
  6. TENOFOVIR [Suspect]
     Indication: HIV INFECTION
  7. HYDROCORTISONE [Concomitant]
     Indication: CUSHING'S SYNDROME
  8. NELFINAVIR [Concomitant]
     Indication: HIV INFECTION

REACTIONS (3)
  - CUSHING'S SYNDROME [None]
  - DRUG INTERACTION [None]
  - VIROLOGIC FAILURE [None]
